FAERS Safety Report 11168385 (Version 1)
Quarter: 2015Q2

REPORT INFORMATION
  Report Type: Spontaneous
  Country: US (occurrence: US)
  Receive Date: 20150605
  Receipt Date: 20150605
  Transmission Date: 20150821
  Serious: No
  Sender: FDA-Public Use
  Company Number: US-GLAXOSMITHKLINE-US2015075628

PATIENT
  Sex: Female
  Weight: 66 kg

DRUGS (1)
  1. EQUATE NICOTINE [Suspect]
     Active Substance: NICOTINE
     Indication: SMOKING CESSATION THERAPY
     Dosage: 21 MG, UNK
     Dates: start: 20150530, end: 20150530

REACTIONS (3)
  - Application site discolouration [Recovered/Resolved]
  - Hypersensitivity [Recovered/Resolved]
  - Application site swelling [Recovered/Resolved]
